FAERS Safety Report 9113010 (Version 1)
Quarter: 2013Q1

REPORT INFORMATION
  Report Type: Report from Study
  Country: FR (occurrence: FR)
  Receive Date: 20130211
  Receipt Date: 20130211
  Transmission Date: 20140127
  Serious: Yes (Hospitalization, Other)
  Sender: FDA-Public Use
  Company Number: FR-AMGEN-FRACT2013008879

PATIENT
  Age: 41 Year
  Sex: Female

DRUGS (5)
  1. ETANERCEPT [Suspect]
     Indication: ANKYLOSING SPONDYLITIS
     Dosage: UNK UNK,2 DOSES TOTAL WEEKLY
     Route: 058
     Dates: start: 20020502, end: 20070208
  2. METHOTREXATE SODIUM [Concomitant]
     Indication: ANKYLOSING SPONDYLITIS
     Dosage: 7.5 MG, 1X/WK
     Route: 048
     Dates: end: 2007
  3. VOLTARENE                          /00372302/ [Concomitant]
     Dosage: UNK UNK, UNK
     Route: 048
  4. TOPALGIC                           /00599202/ [Concomitant]
     Dosage: UNK
     Route: 048
     Dates: start: 200307, end: 20070322
  5. TOPALGIC                           /00599202/ [Concomitant]
     Dosage: UNK
     Route: 048
     Dates: start: 20070323

REACTIONS (1)
  - Chronic lymphocytic leukaemia [Not Recovered/Not Resolved]
